FAERS Safety Report 21955020 (Version 2)
Quarter: 2023Q2

REPORT INFORMATION
  Report Type: Report from Study
  Country: US (occurrence: US)
  Receive Date: 20230206
  Receipt Date: 20230510
  Transmission Date: 20230722
  Serious: Yes (Hospitalization)
  Sender: FDA-Public Use
  Company Number: US-ABBVIE-4293797

PATIENT
  Age: 54 Year
  Sex: Female

DRUGS (2)
  1. HUMIRA [Suspect]
     Active Substance: ADALIMUMAB
     Indication: Colitis ulcerative
     Dosage: CITRATE FREE
     Route: 058
  2. HUMIRA [Suspect]
     Active Substance: ADALIMUMAB
     Dosage: CITRATE FREE
     Route: 058

REACTIONS (13)
  - Large intestinal obstruction [Recovered/Resolved]
  - Red blood cell count increased [Unknown]
  - Mobility decreased [Unknown]
  - Haemoglobin abnormal [Unknown]
  - Haematocrit abnormal [Unknown]
  - Liver function test abnormal [Unknown]
  - Vasculitis [Unknown]
  - Musculoskeletal disorder [Unknown]
  - Rash [Recovering/Resolving]
  - Alopecia [Unknown]
  - Arthritis [Unknown]
  - Inflammatory marker increased [Unknown]
  - Weight fluctuation [Unknown]

NARRATIVE: CASE EVENT DATE: 20230125
